FAERS Safety Report 4381361-9 (Version None)
Quarter: 2004Q2

REPORT INFORMATION
  Report Type: 
  Country: None (occurrence: None)
  Receive Date: 20040617
  Receipt Date: 20040617
  Transmission Date: 20050107
  Serious: Yes (Other)
  Sender: FDA-Public Use
  Company Number: None

PATIENT
  Sex: Male
  Weight: 99.7913 kg

DRUGS (1)
  1. METFORMIN / GLYBURIDE 5/500 [Suspect]
     Indication: DIABETES MELLITUS
     Dosage: 1 PO BID
     Route: 048
     Dates: start: 20040529, end: 20040605

REACTIONS (5)
  - ASTHENIA [None]
  - DIZZINESS [None]
  - HYPOGLYCAEMIA [None]
  - PHARMACEUTICAL PRODUCT COMPLAINT [None]
  - SEDATION [None]
